FAERS Safety Report 15992577 (Version 2)
Quarter: 2019Q1

REPORT INFORMATION
  Report Type: Report from Study
  Country: US (occurrence: US)
  Receive Date: 20190221
  Receipt Date: 20190311
  Transmission Date: 20190418
  Serious: Yes (Hospitalization)
  Sender: FDA-Public Use
  Company Number: US-ACTELION-A-NJ2019-186295

PATIENT
  Age: 4 Month
  Sex: Female

DRUGS (3)
  1. REVATIO [Concomitant]
     Active Substance: SILDENAFIL CITRATE
     Dosage: 6 MG
     Dates: start: 20081019
  2. TRACLEER [Suspect]
     Active Substance: BOSENTAN
     Indication: PULMONARY ARTERIAL HYPERTENSION
     Dosage: 32 MG, 1.25 ML BID
     Route: 048
     Dates: start: 20181107
  3. REMODULIN [Concomitant]
     Active Substance: TREPROSTINIL
     Dosage: 32 NG/KG, PER MIN
     Dates: start: 20181106

REACTIONS (5)
  - Catheter site erythema [Recovered/Resolved]
  - Catheter site abscess [Recovered/Resolved]
  - Purulent discharge [Recovered/Resolved]
  - Staphylococcal infection [Recovered/Resolved]
  - Catheter site infection [Recovered/Resolved]

NARRATIVE: CASE EVENT DATE: 20190108
